FAERS Safety Report 8114358-3 (Version None)
Quarter: 2012Q1

REPORT INFORMATION
  Report Type: 
  Country: None (occurrence: None)
  Receive Date: 20120206
  Receipt Date: 20120125
  Transmission Date: 20120608
  Serious: No
  Sender: FDA-Public Use
  Company Number: US-BIOGENIDEC-2012BI003092

PATIENT
  Age: 20 Year
  Sex: Female

DRUGS (6)
  1. TYSABRI [Suspect]
     Indication: MULTIPLE SCLEROSIS
     Route: 042
     Dates: start: 20110705
  2. CELEXA [Concomitant]
  3. BENADRYL [Concomitant]
  4. LORATADINE [Concomitant]
  5. CELEXA [Concomitant]
  6. FLEXERIL [Concomitant]

REACTIONS (1)
  - VISUAL IMPAIRMENT [None]
